FAERS Safety Report 4430811-8 (Version None)
Quarter: 2004Q3

REPORT INFORMATION
  Report Type: 
  Country: None (occurrence: None)
  Receive Date: 20040823
  Receipt Date: 20040719
  Transmission Date: 20050211
  Serious: Yes (Hospitalization)
  Sender: FDA-Public Use
  Company Number: PHBS2004ES09687

PATIENT
  Age: 79 Year
  Sex: Male
  Weight: 80 kg

DRUGS (12)
  1. CARBAMAZEPINE [Suspect]
     Indication: NEUROPATHY
     Dosage: 200 MG/DAY
     Route: 048
  2. CARBAMAZEPINE [Suspect]
     Dosage: 400 MG/DAY
     Route: 048
  3. PAROXETINE HCL [Suspect]
     Indication: DEPRESSION
     Dosage: 20 MG/DAY
     Route: 065
  4. PREDNISOLONE [Concomitant]
     Dosage: 30 MG/DAY
     Route: 065
  5. METFORMIN HCL [Concomitant]
     Indication: DIABETES MELLITUS
     Dosage: 850 MG/DAY
     Route: 065
  6. ENALAPRIL MALEATE [Concomitant]
     Indication: HYPERTENSION
     Dosage: 20 MG/DAY
     Route: 065
  7. OMEPRAZOLE [Concomitant]
     Indication: GASTROOESOPHAGEAL REFLUX DISEASE
     Dosage: 20 MG/DAY
     Route: 065
  8. GLICLAZIDE [Concomitant]
     Indication: DIABETES MELLITUS NON-INSULIN-DEPENDENT
     Dosage: 15 MG/DAY
     Route: 065
  9. VALACYCLOVIR HCL [Concomitant]
     Indication: HERPES ZOSTER
     Dosage: 1 G/DAY
     Route: 065
     Dates: start: 20020601
  10. METAMIZOLE [Concomitant]
     Dosage: 6 G/DAY
     Route: 065
  11. ACYCLOVIR [Concomitant]
  12. ENOXACIN [Concomitant]

REACTIONS (10)
  - ATRIOVENTRICULAR BLOCK [None]
  - BRADYCARDIA [None]
  - CONFUSIONAL STATE [None]
  - DRUG INTERACTION [None]
  - HYPERTENSION [None]
  - HYPONATRAEMIA [None]
  - PROTEINURIA [None]
  - SYNCOPE [None]
  - URINARY INCONTINENCE [None]
  - VERTIGO [None]
